FAERS Safety Report 8176491-X (Version None)
Quarter: 2012Q1

REPORT INFORMATION
  Report Type: 
  Country: None (occurrence: None)
  Receive Date: 20120301
  Receipt Date: 20120227
  Transmission Date: 20120608
  Serious: Yes (Death, Hospitalization)
  Sender: FDA-Public Use
  Company Number: BR-PFIZER INC-2012035616

PATIENT
  Age: 75 Year
  Sex: Male
  Weight: 55 kg

DRUGS (1)
  1. SUTENT [Suspect]
     Indication: RENAL CANCER
     Dosage: 50 MG, 1X/DAY
     Route: 048
     Dates: start: 20120120

REACTIONS (6)
  - DEATH [None]
  - RASH MACULAR [None]
  - ASTHENIA [None]
  - MUSCULAR WEAKNESS [None]
  - FATIGUE [None]
  - BEDRIDDEN [None]
